FAERS Safety Report 13855283 (Version 1)
Quarter: 2017Q3

REPORT INFORMATION
  Report Type: Spontaneous
  Country: IT (occurrence: IT)
  Receive Date: 20170810
  Receipt Date: 20170810
  Transmission Date: 20171127
  Serious: Yes (Other)
  Sender: FDA-Public Use
  Company Number: IT-TEVA-794352ACC

PATIENT
  Age: 66 Year
  Sex: Female

DRUGS (4)
  1. TRIMETON - 10 MG/1 ML [Concomitant]
     Indication: ALLERGY PROPHYLAXIS
     Dosage: 10 MILLIGRAM DAILY;
     Route: 042
     Dates: start: 20170718, end: 20170718
  2. ALOXI [Concomitant]
     Active Substance: PALONOSETRON HYDROCHLORIDE
     Indication: PROPHYLAXIS OF NAUSEA AND VOMITING
     Dosage: .25 MILLIGRAM DAILY;
     Route: 042
     Dates: start: 20170718, end: 20170718
  3. PACLITAXEL TEVA ITALIA S.R.L. [Suspect]
     Active Substance: PACLITAXEL
     Indication: OVARIAN CANCER
     Dosage: 230 MILLIGRAM DAILY;
     Route: 042
     Dates: start: 20170627, end: 20170718
  4. DESAMETASONE FOSFATO HOSPIRA [Concomitant]
     Indication: ALLERGY PROPHYLAXIS
     Dosage: 12 MILLIGRAM DAILY;
     Route: 042
     Dates: start: 20170718, end: 20170718

REACTIONS (3)
  - Hypertensive crisis [Recovered/Resolved]
  - Back pain [Recovered/Resolved]
  - Migraine [Recovered/Resolved]

NARRATIVE: CASE EVENT DATE: 20170718
